FAERS Safety Report 7928358-7 (Version None)
Quarter: 2011Q4

REPORT INFORMATION
  Report Type: 
  Country: None (occurrence: None)
  Receive Date: 20111118
  Receipt Date: 20111115
  Transmission Date: 20120403
  Serious: Yes (Death, Hospitalization)
  Sender: FDA-Public Use
  Company Number: PHHY2011PT100669

PATIENT
  Age: 74 Year
  Sex: Male

DRUGS (2)
  1. DOCETAXEL [Suspect]
     Indication: PROSTATE CANCER
     Dosage: 80 MG, BID
     Route: 065
     Dates: start: 20111108
  2. HORMONES [Concomitant]

REACTIONS (2)
  - BONE MARROW FAILURE [None]
  - FEBRILE NEUTROPENIA [None]
